FAERS Safety Report 8274702-3 (Version None)
Quarter: 2012Q2

REPORT INFORMATION
  Report Type: 
  Country: None (occurrence: None)
  Receive Date: 20120411
  Receipt Date: 20120405
  Transmission Date: 20120825
  Serious: Yes (Death)
  Sender: FDA-Public Use
  Company Number: US-ACTELION-A-NJ2007-17498

PATIENT

DRUGS (4)
  1. DIURETICS [Concomitant]
  2. CALCIUM CHANNEL BLOCKERS [Concomitant]
  3. TRACLEER [Suspect]
     Indication: PULMONARY ARTERIAL HYPERTENSION
     Dosage: UNK
     Route: 048
     Dates: start: 20070512, end: 20120318
  4. COUMADIN [Concomitant]

REACTIONS (5)
  - OEDEMA PERIPHERAL [None]
  - INCREASED UPPER AIRWAY SECRETION [None]
  - WEIGHT INCREASED [None]
  - PULMONARY ARTERIAL HYPERTENSION [None]
  - DYSPNOEA [None]
